FAERS Safety Report 18697393 (Version 3)
Quarter: 2021Q3

REPORT INFORMATION
  Report Type: Spontaneous
  Country: US (occurrence: US)
  Receive Date: 20210104
  Receipt Date: 20210929
  Transmission Date: 20211014
  Serious: No
  Sender: FDA-Public Use
  Company Number: US-PFIZER INC-2017520359

PATIENT
  Age: 67 Year
  Sex: Female

DRUGS (2)
  1. LYRICA [Suspect]
     Active Substance: PREGABALIN
     Dosage: 75 MG, 4X/DAY
     Route: 048
     Dates: start: 20171019
  2. LYRICA [Suspect]
     Active Substance: PREGABALIN
     Dosage: 75 MG, 4X/DAY (1 CAPSULE BY MOUTH FOUR TIMES DAILY FOR 360 DAYS)
     Route: 048

REACTIONS (1)
  - Feeling abnormal [Unknown]
